FAERS Safety Report 13650756 (Version 3)
Quarter: 2017Q3

REPORT INFORMATION
  Report Type: Report from Study
  Country: None (occurrence: ZA)
  Receive Date: 20170614
  Receipt Date: 20170731
  Transmission Date: 20171127
  Serious: Yes (Hospitalization, Other)
  Sender: FDA-Public Use
  Company Number: ZA-ABBVIE-17K-143-1992473-00

PATIENT
  Sex: Male

DRUGS (2)
  1. HUMIRA [Suspect]
     Active Substance: ADALIMUMAB
     Indication: CROHN^S DISEASE
     Route: 058
     Dates: start: 2016, end: 201701
  2. HUMIRA [Suspect]
     Active Substance: ADALIMUMAB
     Route: 058
     Dates: start: 20170119

REACTIONS (13)
  - Tuberculosis [Unknown]
  - Splenic abscess [Recovered/Resolved]
  - Renal pain [Unknown]
  - Cold sweat [Recovering/Resolving]
  - Injection site pain [Unknown]
  - Splenomegaly [Recovered/Resolved]
  - Headache [Recovering/Resolving]
  - Chest discomfort [Recovered/Resolved]
  - Viral infection [Unknown]
  - Chills [Recovering/Resolving]
  - Endocarditis [Unknown]
  - Crohn^s disease [Unknown]
  - Sepsis [Recovering/Resolving]

NARRATIVE: CASE EVENT DATE: 2017
